FAERS Safety Report 16233263 (Version 13)
Quarter: 2021Q2

REPORT INFORMATION
  Report Type: Report from Study
  Country: None (occurrence: NL)
  Receive Date: 20190424
  Receipt Date: 20210602
  Transmission Date: 20210716
  Serious: Yes (Other)
  Sender: FDA-Public Use
  Company Number: NL-ABBVIE-19S-114-2750681-00

PATIENT
  Sex: Male
  Weight: 86 kg

DRUGS (12)
  1. SYMMETREL [Concomitant]
     Active Substance: AMANTADINE HYDROCHLORIDE
     Indication: ADVERSE DRUG REACTION
     Dosage: 1 IN THE MORNING
     Route: 048
     Dates: start: 20170901
  2. BOTOX [Concomitant]
     Active Substance: ONABOTULINUMTOXINA
     Indication: PRODUCT USED FOR UNKNOWN INDICATION
  3. IRBESARTAN TEVA [Concomitant]
     Active Substance: IRBESARTAN
     Indication: BLOOD PRESSURE MEASUREMENT
     Dosage: 1 TIME 2 TABLETS
     Route: 048
     Dates: start: 20191104
  4. DUODOPA [Suspect]
     Active Substance: CARBIDOPA\LEVODOPA
     Dosage: MD: 5.3ML, CD: 3.4ML/H, ED: 1.5ML
     Route: 050
  5. DUODOPA [Suspect]
     Active Substance: CARBIDOPA\LEVODOPA
     Indication: PARKINSON^S DISEASE
     Dosage: MD: 6.0, CD: 3.3, ED: 1.5, 16 HOUR ADMINISTRATION
     Route: 050
     Dates: start: 20121205
  6. DUODOPA [Suspect]
     Active Substance: CARBIDOPA\LEVODOPA
     Dosage: MD: 7.0 ML; CD: 3.4 ML/H; ED: 1.5 ML; 16 HOUR ADMINISTRATION
     Route: 050
  7. DUODOPA [Suspect]
     Active Substance: CARBIDOPA\LEVODOPA
     Dosage: MD 7.0 CD 3.4 ED 1.5, REMAINS AT 16 HOURS
     Route: 050
  8. LEVODOPA/CARBIDOPA RETARD [Concomitant]
     Active Substance: CARBIDOPA\LEVODOPA
     Indication: PARKINSON^S DISEASE
     Dosage: ONE TABLET IN THE EVENING
     Route: 048
     Dates: start: 20170901
  9. DUODOPA [Suspect]
     Active Substance: CARBIDOPA\LEVODOPA
     Dosage: MD: 5.3ML, CD: 3.4ML/H, ED: 1.5ML, END: 1.5ML, CND: 1.7ML/H
     Route: 050
  10. ESOMEPRAZOL [Concomitant]
     Active Substance: ESOMEPRAZOLE
     Indication: PROPHYLAXIS
     Dosage: 1 TIME 1 TABLET
     Route: 048
     Dates: start: 20170901
  11. DUODOPA [Suspect]
     Active Substance: CARBIDOPA\LEVODOPA
     Dosage: CONTINUOUS DOSE INCREASED WITH 0.1 TO 3.4
     Route: 050
  12. DUODOPA [Suspect]
     Active Substance: CARBIDOPA\LEVODOPA
     Dosage: MD: 7.0 ML; CD: 3.2 ML/H; ED: 1.5 ML; 16 HOUR ADMINISTRATION
     Route: 050

REACTIONS (29)
  - Terminal insomnia [Not Recovered/Not Resolved]
  - Fatigue [Not Recovered/Not Resolved]
  - Muscle rigidity [Not Recovered/Not Resolved]
  - Device connection issue [Unknown]
  - Musculoskeletal disorder [Not Recovered/Not Resolved]
  - Stoma site discharge [Recovered/Resolved]
  - Stoma site inflammation [Unknown]
  - Cataract [Not Recovered/Not Resolved]
  - Abnormal dreams [Recovered/Resolved]
  - Bradykinesia [Not Recovered/Not Resolved]
  - Sleep disorder [Recovered/Resolved]
  - Unevaluable event [Not Recovered/Not Resolved]
  - Faeces hard [Not Recovered/Not Resolved]
  - Visual impairment [Recovered/Resolved]
  - Dyschezia [Not Recovered/Not Resolved]
  - Dyskinesia [Not Recovered/Not Resolved]
  - Initial insomnia [Recovered/Resolved]
  - Freezing phenomenon [Not Recovered/Not Resolved]
  - Fibroma [Not Recovered/Not Resolved]
  - Inflammation [Not Recovered/Not Resolved]
  - Fibroma [Recovered/Resolved]
  - Gait disturbance [Not Recovered/Not Resolved]
  - Paraesthesia [Unknown]
  - Stoma site erythema [Recovered/Resolved]
  - Stoma site reaction [Recovered/Resolved]
  - On and off phenomenon [Not Recovered/Not Resolved]
  - Weight increased [Recovered/Resolved]
  - Nocturia [Not Recovered/Not Resolved]
  - Tension [Not Recovered/Not Resolved]
